FAERS Safety Report 7692707-8 (Version None)
Quarter: 2011Q3

REPORT INFORMATION
  Report Type: 
  Country: None (occurrence: None)
  Receive Date: 20110815
  Receipt Date: 20110803
  Transmission Date: 20111222
  Serious: Yes (Other)
  Sender: FDA-Public Use
  Company Number: JHP201100376

PATIENT
  Age: 27 Year
  Sex: Male

DRUGS (3)
  1. TRIMECAINE (TRIMECAINE) [Suspect]
     Dosage: INJECTION INTO NASAL MUCOSA, INJECTION
  2. ANESTHETICS, GENERAL [Concomitant]
  3. EPINEPHRINE [Suspect]
     Indication: VASOPRESSIVE THERAPY
     Dosage: 6 ML - 1:10,000 CONCENTRATION INTO THE NASAL MUCOSA, INJECTION

REACTIONS (9)
  - HYPOTENSION [None]
  - VENTRICULAR EXTRASYSTOLES [None]
  - DRUG DISPENSING ERROR [None]
  - VENTRICULAR TACHYCARDIA [None]
  - HEART RATE INCREASED [None]
  - DRUG LEVEL INCREASED [None]
  - BLOOD PRESSURE INCREASED [None]
  - INCORRECT DOSE ADMINISTERED [None]
  - VASODILATATION [None]
